FAERS Safety Report 7322767-5 (Version None)
Quarter: 2011Q1

REPORT INFORMATION
  Report Type: 
  Country: None (occurrence: None)
  Receive Date: 20110301
  Receipt Date: 20110221
  Transmission Date: 20110831
  Serious: Yes (Other)
  Sender: FDA-Public Use
  Company Number: JP-ASTELLAS-2011JP001333

PATIENT
  Sex: Female

DRUGS (2)
  1. VESICARE [Suspect]
     Dosage: 10 MG, UNKNOWN/D
     Route: 048
     Dates: start: 20110125, end: 20110218
  2. VESICARE [Suspect]
     Dosage: 5 MG, UNKNOWN/D
     Route: 048
     Dates: start: 20110219

REACTIONS (1)
  - DELIRIUM [None]
